FAERS Safety Report 9047249 (Version 1)
Quarter: 2013Q1

REPORT INFORMATION
  Report Type: Report from Study
  Country: US (occurrence: US)
  Receive Date: 20130131
  Receipt Date: 20130131
  Transmission Date: 20140127
  Serious: Yes (Hospitalization)
  Sender: FDA-Public Use
  Company Number: US-ABBOTT-12P-163-0909823-00

PATIENT
  Sex: Male
  Weight: 79.45 kg

DRUGS (2)
  1. HUMIRA [Suspect]
     Indication: PSORIATIC ARTHROPATHY
     Dates: start: 20110112, end: 20110125
  2. REMICADE [Suspect]
     Indication: PSORIASIS
     Dosage: 5 MG/KG EVERY 8 WEEKS
     Dates: start: 200510, end: 201003

REACTIONS (1)
  - Salivary gland cancer [Recovering/Resolving]
